FAERS Safety Report 15690312 (Version 1)
Quarter: 2018Q4

REPORT INFORMATION
  Report Type: Spontaneous
  Country: NO (occurrence: NO)
  Receive Date: 20181205
  Receipt Date: 20181205
  Transmission Date: 20190205
  Serious: Yes (Life-Threatening, Hospitalization, Other)
  Sender: FDA-Public Use
  Company Number: NO-SAKK-2018SA327325AA

PATIENT
  Age: 29 Year
  Sex: Female

DRUGS (5)
  1. ALEMTUZUMAB [Suspect]
     Active Substance: ALEMTUZUMAB
     Indication: RELAPSING-REMITTING MULTIPLE SCLEROSIS
     Dosage: 12 MG, QD
     Route: 041
  2. PARACETAMOL [Concomitant]
     Active Substance: ACETAMINOPHEN
     Indication: PREMEDICATION
     Dosage: 1000 MG
  3. CETIRIZINE [Concomitant]
     Active Substance: CETIRIZINE HYDROCHLORIDE
     Indication: PREMEDICATION
     Dosage: 10 MG
  4. ACYCLOVIR [ACICLOVIR] [Concomitant]
     Active Substance: ACYCLOVIR
     Indication: PREMEDICATION
     Dosage: 400 MG
  5. METHYLPREDNISOLONE. [Concomitant]
     Active Substance: METHYLPREDNISOLONE
     Indication: PREMEDICATION
     Dosage: 100 MG

REACTIONS (9)
  - Chest pain [Recovered/Resolved]
  - Dyspnoea [Recovered/Resolved]
  - Acute lung injury [Recovered/Resolved]
  - Cough [Recovered/Resolved]
  - Haemoptysis [Recovered/Resolved]
  - Sinus bradycardia [Recovered/Resolved]
  - Pulmonary haemorrhage [Recovered/Resolved]
  - Painful respiration [Recovered/Resolved]
  - Headache [Recovered/Resolved]
